FAERS Safety Report 25114723 (Version 1)
Quarter: 2025Q1

REPORT INFORMATION
  Report Type: Spontaneous
  Country: IT (occurrence: IT)
  Receive Date: 20250324
  Receipt Date: 20250324
  Transmission Date: 20250408
  Serious: Yes (Hospitalization)
  Sender: PFIZER
  Company Number: IT-PFIZER INC-202500062598

PATIENT
  Age: 65 Year
  Sex: Male

DRUGS (1)
  1. ELRANATAMAB [Suspect]
     Active Substance: ELRANATAMAB

REACTIONS (4)
  - Neutropenia [Unknown]
  - Hypogammaglobulinaemia [Unknown]
  - Cytomegalovirus oesophagitis [Unknown]
  - Oral herpes [Unknown]
